FAERS Safety Report 9341085 (Version 2)
Quarter: 2013Q3

REPORT INFORMATION
  Report Type: Spontaneous
  Country: FR (occurrence: FR)
  Receive Date: 20130610
  Receipt Date: 20130705
  Transmission Date: 20140515
  Serious: Yes (Death, Life-Threatening, Hospitalization)
  Sender: FDA-Public Use
  Company Number: FR-ASTRAZENECA-2013SE41109

PATIENT
  Age: 27831 Day
  Sex: Male

DRUGS (12)
  1. INEXIUM [Suspect]
     Route: 048
     Dates: start: 20130118
  2. INEXIUM [Interacting]
     Route: 048
  3. MOPRAL [Interacting]
     Route: 048
  4. METFORMINE [Suspect]
     Route: 048
     Dates: start: 201301
  5. PREVISCAN [Suspect]
     Route: 048
     Dates: start: 2003, end: 20130131
  6. HEMIGOXINE NATIVELLE [Suspect]
     Route: 048
  7. BISOPROLOL [Suspect]
     Route: 048
  8. APROVEL [Suspect]
     Route: 048
  9. GANFORT [Suspect]
     Route: 047
  10. SIMVASTATINE [Interacting]
     Route: 048
  11. KARDEGIC [Interacting]
     Route: 048
     Dates: start: 2013
  12. LOVENOX [Interacting]
     Route: 058
     Dates: start: 201301

REACTIONS (7)
  - Overdose [Fatal]
  - Drug interaction [Unknown]
  - Anaemia [Fatal]
  - International normalised ratio increased [Recovered/Resolved]
  - Brain stem infarction [Unknown]
  - Fall [Unknown]
  - Traumatic haematoma [Unknown]
